FAERS Safety Report 17909078 (Version 1)
Quarter: 2020Q2

REPORT INFORMATION
  Report Type: Report from Study
  Country: US (occurrence: US)
  Receive Date: 20200617
  Receipt Date: 20200617
  Transmission Date: 20200714
  Serious: Yes (Hospitalization, Other)
  Sender: FDA-Public Use
  Company Number: US-MYLANLABS-2020M1057031

PATIENT
  Sex: Female

DRUGS (2)
  1. DOXORUBICIN [Suspect]
     Active Substance: DOXORUBICIN
     Indication: OVARIAN CANCER
     Dosage: 22.5 MILLIGRAM/SQ. METER, CYCLE, ON DAY 1 OF A 28 DAY CYCLE
     Route: 042
  2. ABT 888 [Interacting]
     Active Substance: VELIPARIB
     Indication: OVARIAN CANCER
     Dosage: 50 MILLIGRAM, BID, ON DAYS 1-14
     Route: 048

REACTIONS (7)
  - Palmar-plantar erythrodysaesthesia syndrome [Unknown]
  - Oesophageal squamous cell carcinoma [Not Recovered/Not Resolved]
  - Squamous cell carcinoma [Recovered/Resolved]
  - Metastases to lymph nodes [Not Recovered/Not Resolved]
  - Carcinoma in situ [Recovered/Resolved]
  - Drug interaction [Recovering/Resolving]
  - Gingival cancer [Recovered/Resolved]
